FAERS Safety Report 7774536-X (Version None)
Quarter: 2011Q3

REPORT INFORMATION
  Report Type: 
  Country: None (occurrence: None)
  Receive Date: 20110923
  Receipt Date: 20110923
  Transmission Date: 20111222
  Serious: Yes (Other)
  Sender: FDA-Public Use
  Company Number: None

PATIENT
  Age: 71 Year
  Sex: Female
  Weight: 73 kg

DRUGS (1)
  1. LANSOPRAZOLE [Suspect]
     Dosage: 30 MG
     Route: 045
     Dates: start: 20110829, end: 20110922

REACTIONS (1)
  - DEVICE OCCLUSION [None]
